FAERS Safety Report 9202175 (Version 1)
Quarter: 2013Q1

REPORT INFORMATION
  Report Type: Spontaneous
  Country: AU (occurrence: None)
  Receive Date: 20130328
  Receipt Date: 20130328
  Transmission Date: 20140127
  Serious: Yes (Other)
  Sender: FDA-Public Use
  Company Number: 220824

PATIENT
  Age: 61 Year
  Sex: Male
  Weight: 61 kg

DRUGS (10)
  1. PICATO [Suspect]
     Indication: ACTINIC KERATOSIS
     Dosage: 0.05 % (0.05 %, 1 IN 1 D)
     Dates: start: 20130116, end: 20130117
  2. LEO 43204 [Suspect]
     Indication: ACTINIC KERATOSIS
     Dosage: 0.025 % (0.025 %, 1 IN 1 D)?
     Dates: start: 20130116, end: 20130117
  3. LEO 43204 [Suspect]
     Indication: ACTINIC KERATOSIS
     Dosage: 0.05 % (0.05 %, 1 IN 1 D)?
     Dates: start: 20130116, end: 20130117
  4. LEO 43204 [Suspect]
     Indication: ACTINIC KERATOSIS
     Dosage: 0.075 % (0.075 %, 1 IN 1 D)?
     Dates: start: 20130116, end: 20130117
  5. DULOXETINE [Concomitant]
  6. MELOXICAM (MELOXICAM) [Concomitant]
  7. ESOMEPRAZOLE (ESOMEPRAZOLE) [Concomitant]
  8. LOPERAMIDE (LOPERAMIDE HYDROCHLORIDE) [Concomitant]
  9. METOCLOPRAMIDE (METOCLOPRAMIDE) [Concomitant]
  10. NORFLOXACIN (NORFLOXACIN) [Concomitant]

REACTIONS (1)
  - Squamous cell carcinoma [None]
